FAERS Safety Report 25286436 (Version 3)
Quarter: 2025Q2

REPORT INFORMATION
  Report Type: Spontaneous
  Country: US (occurrence: US)
  Receive Date: 20250509
  Receipt Date: 20250611
  Transmission Date: 20250717
  Serious: Yes (Hospitalization)
  Sender: ASPIRO PHARMA
  Company Number: US-AMAROX PHARMA-ASP2025US02184

PATIENT

DRUGS (1)
  1. FOSAPREPITANT [Interacting]
     Active Substance: FOSAPREPITANT
     Indication: Product used for unknown indication
     Route: 065

REACTIONS (2)
  - Drug interaction [Unknown]
  - Infusion related reaction [Unknown]
